FAERS Safety Report 15438590 (Version 4)
Quarter: 2018Q4

REPORT INFORMATION
  Report Type: Spontaneous
  Country: GB (occurrence: GB)
  Receive Date: 20180928
  Receipt Date: 20181114
  Transmission Date: 20190204
  Serious: Yes (Other)
  Sender: FDA-Public Use
  Company Number: GB-REGENERON PHARMACEUTICALS, INC.-2018-37015

PATIENT

DRUGS (4)
  1. EYLEA [Suspect]
     Active Substance: AFLIBERCEPT
     Indication: NEOVASCULAR AGE-RELATED MACULAR DEGENERATION
     Dosage: 1 DF, ONCE, LAST INJECTION PRIOR TO EVENT
     Route: 031
     Dates: start: 20180809, end: 20180809
  2. CHLORAMPHENICOL [Concomitant]
     Active Substance: CHLORAMPHENICOL
     Indication: INFECTION PROPHYLAXIS
     Dosage: BEFORE IVT INJECTION
     Route: 047
  3. IODINE SOLUTION [Concomitant]
     Indication: INFECTION PROPHYLAXIS
     Dosage: ON PERIOCULAR SKIN, EYELIDS AND EYELASHES
  4. POVIDONE-IODINE. [Concomitant]
     Active Substance: POVIDONE-IODINE
     Indication: INFECTION PROPHYLAXIS

REACTIONS (4)
  - Blindness transient [Recovered/Resolved]
  - Vitreous floaters [Recovered/Resolved]
  - Eye inflammation [Recovered/Resolved]
  - Non-infectious endophthalmitis [Recovered/Resolved]

NARRATIVE: CASE EVENT DATE: 20180904
